FAERS Safety Report 5486925-7 (Version None)
Quarter: 2007Q3

REPORT INFORMATION
  Report Type: 
  Country: None (occurrence: None)
  Receive Date: 20070928
  Receipt Date: 20070607
  Transmission Date: 20080115
  Serious: No
  Sender: FDA-Public Use
  Company Number: 2007US001332

PATIENT
  Age: 68 Year
  Sex: Female

DRUGS (1)
  1. VESICARE [Suspect]
     Indication: AUTOMATIC BLADDER

REACTIONS (1)
  - DRY EYE [None]
